FAERS Safety Report 9611111 (Version 1)
Quarter: 2013Q4

REPORT INFORMATION
  Report Type: Spontaneous
  Country: AU (occurrence: AU)
  Receive Date: 20131009
  Receipt Date: 20131009
  Transmission Date: 20140711
  Serious: Yes (Other)
  Sender: FDA-Public Use
  Company Number: PHHY2013AU110213

PATIENT
  Sex: Female

DRUGS (1)
  1. GILENYA [Suspect]
     Indication: MULTIPLE SCLEROSIS
     Route: 048
     Dates: start: 20111111

REACTIONS (9)
  - Endometriosis [Unknown]
  - Carbohydrate antigen 125 increased [Unknown]
  - Metrorrhagia [Unknown]
  - Dysmenorrhoea [Unknown]
  - Haemorrhagic ovarian cyst [Unknown]
  - Menorrhagia [Unknown]
  - Wound [Recovered/Resolved]
  - Fallopian tube cyst [Unknown]
  - Uterine polyp [Unknown]
